FAERS Safety Report 25318812 (Version 1)
Quarter: 2025Q2

REPORT INFORMATION
  Report Type: Spontaneous
  Country: JP (occurrence: JP)
  Receive Date: 20250515
  Receipt Date: 20250515
  Transmission Date: 20250717
  Serious: Yes (Hospitalization)
  Sender: PFIZER
  Company Number: None

PATIENT
  Age: 64 Year
  Sex: Male
  Weight: 73.5 kg

DRUGS (19)
  1. PAXLOVID [Interacting]
     Active Substance: NIRMATRELVIR\RITONAVIR
     Indication: COVID-19
     Route: 048
     Dates: start: 20241211, end: 20241216
  2. PROGRAF [Interacting]
     Active Substance: TACROLIMUS
     Indication: Idiopathic interstitial pneumonia
     Dosage: 2 MG, 2X/DAY
     Route: 048
     Dates: start: 20181205, end: 20241220
  3. PROGRAF [Interacting]
     Active Substance: TACROLIMUS
     Dosage: 2 MG, DAILY
     Route: 048
     Dates: start: 20241221, end: 20241223
  4. PROGRAF [Interacting]
     Active Substance: TACROLIMUS
     Dosage: 2 MG, DAILY
     Dates: start: 20241227
  5. AMBROXOL HYDROCHLORIDE [Concomitant]
     Active Substance: AMBROXOL HYDROCHLORIDE
     Route: 048
  6. BIO-THREE [Concomitant]
     Active Substance: HERBALS
     Route: 048
  7. FAMOTIDINE [Concomitant]
     Active Substance: FAMOTIDINE
     Route: 048
  8. FEXOFENADINE HYDROCHLORIDE [Concomitant]
     Active Substance: FEXOFENADINE HYDROCHLORIDE
     Route: 048
  9. HERBALS [Concomitant]
     Active Substance: HERBALS
     Route: 048
  10. HERBALS [Concomitant]
     Active Substance: HERBALS
     Route: 048
  11. CARBOCYSTEINE [Concomitant]
     Active Substance: CARBOCYSTEINE
     Route: 048
  12. LOPERAMIDE [Concomitant]
     Active Substance: LOPERAMIDE
     Route: 048
  13. MINODRONIC ACID [Concomitant]
     Active Substance: MINODRONIC ACID
     Route: 048
  14. MONTELUKAST SODIUM [Concomitant]
     Active Substance: MONTELUKAST SODIUM
     Route: 048
  15. OFEV [Concomitant]
     Active Substance: NINTEDANIB
     Route: 048
  16. PREDONINE [Concomitant]
     Active Substance: PREDNISOLONE
     Route: 048
  17. FLUTICASONE FUROATE\VILANTEROL TRIFENATATE [Concomitant]
     Active Substance: FLUTICASONE FUROATE\VILANTEROL TRIFENATATE
     Route: 055
  18. ATOVAQUONE [Concomitant]
     Active Substance: ATOVAQUONE
     Route: 048
  19. SP [DEQUALINIUM CHLORIDE] [Concomitant]
     Route: 048

REACTIONS (10)
  - Labelled drug-drug interaction medication error [Unknown]
  - Drug interaction [Unknown]
  - Immunosuppressant drug level increased [Recovered/Resolved]
  - Renal disorder [Recovered/Resolved]
  - Hyperkalaemia [Recovered/Resolved]
  - Nausea [Recovered/Resolved]
  - Vomiting [Recovered/Resolved]
  - Haematemesis [Recovered/Resolved]
  - Adrenal insufficiency [Unknown]
  - Therapeutic product effect incomplete [Recovered/Resolved]

NARRATIVE: CASE EVENT DATE: 20241211
